FAERS Safety Report 6816450-X (Version None)
Quarter: 2010Q2

REPORT INFORMATION
  Report Type: 
  Country: None (occurrence: None)
  Receive Date: 20100630
  Receipt Date: 20100618
  Transmission Date: 20101027
  Serious: Yes (Other)
  Sender: FDA-Public Use
  Company Number: 2010US001897

PATIENT
  Sex: Female

DRUGS (4)
  1. PROTOPIC [Suspect]
     Indication: DERMATITIS ATOPIC
     Dosage: TOPICAL
     Route: 061
     Dates: start: 20100518, end: 20100519
  2. TRIAMCINOLONE [Concomitant]
  3. HYDROCORTISONE [Concomitant]
  4. ATARAX [Concomitant]

REACTIONS (1)
  - HYPERSENSITIVITY [None]
